FAERS Safety Report 21199818 (Version 1)
Quarter: 2022Q3

REPORT INFORMATION
  Report Type: Spontaneous
  Country: JP (occurrence: JP)
  Receive Date: 20220811
  Receipt Date: 20220811
  Transmission Date: 20221027
  Serious: Yes (Hospitalization)
  Sender: FDA-Public Use
  Company Number: JP-STRIDES ARCOLAB LIMITED-2022SP010086

PATIENT
  Age: 26 Year
  Sex: Male
  Weight: 76 kg

DRUGS (3)
  1. PREDNISOLONE [Suspect]
     Active Substance: PREDNISOLONE
     Indication: Thyroiditis subacute
     Dosage: 15 MILLIGRAM PER DAY (STARTED ON DAY 12)
     Route: 065
  2. PREDNISOLONE [Suspect]
     Active Substance: PREDNISOLONE
     Dosage: 10 MILLIGRAM PER DAY (REDUCED BY 5 MG EVERY 2 WEEKS AND DISCONTINUED AFTER 6 WEEKS)
     Route: 065
  3. PREDNISOLONE [Suspect]
     Active Substance: PREDNISOLONE
     Dosage: 5 MILLIGRAM PER DAY (REDUCED BY 5 MG EVERY 2 WEEKS AND DISCONTINUED AFTER 6 WEEKS)
     Route: 065

REACTIONS (2)
  - Thyrotoxic periodic paralysis [Recovered/Resolved]
  - Hypokalaemia [Recovered/Resolved]
